FAERS Safety Report 17703021 (Version 15)
Quarter: 2025Q1

REPORT INFORMATION
  Report Type: Report from Study
  Country: US (occurrence: US)
  Receive Date: 20200423
  Receipt Date: 20250107
  Transmission Date: 20250408
  Serious: Yes (Hospitalization, Other)
  Sender: TAKEDA
  Company Number: US-SHIRE-US202014353

PATIENT
  Age: 74 Year
  Sex: Female
  Weight: 58 kg

DRUGS (28)
  1. HUMAN IMMUNOGLOBULIN G [Suspect]
     Active Substance: HUMAN IMMUNOGLOBULIN G
     Indication: Immunodeficiency common variable
     Dosage: 12 GRAM, 2/WEEK
     Dates: start: 20181127
  2. HUMAN IMMUNOGLOBULIN G [Suspect]
     Active Substance: HUMAN IMMUNOGLOBULIN G
     Indication: Selective IgG subclass deficiency
     Dosage: 12 GRAM, Q2WEEKS
     Dates: start: 20181128
  3. DIPHENHYDRAMINE [Concomitant]
     Active Substance: DIPHENHYDRAMINE
  4. METOPROLOL SUCCINATE [Concomitant]
     Active Substance: METOPROLOL SUCCINATE
  5. REPATHA [Concomitant]
     Active Substance: EVOLOCUMAB
  6. EPINEPHRINE [Concomitant]
     Active Substance: EPINEPHRINE
  7. LEVOTHYROXINE SODIUM [Concomitant]
     Active Substance: LEVOTHYROXINE SODIUM
  8. ACETAMINOPHEN [Concomitant]
     Active Substance: ACETAMINOPHEN
  9. GLIPIZIDE [Concomitant]
     Active Substance: GLIPIZIDE
  10. AMBIEN [Concomitant]
     Active Substance: ZOLPIDEM TARTRATE
  11. LANSOPRAZOLE [Concomitant]
     Active Substance: LANSOPRAZOLE
  12. CLONIDINE HYDROCHLORIDE [Concomitant]
     Active Substance: CLONIDINE HYDROCHLORIDE
  13. XARELTO [Concomitant]
     Active Substance: RIVAROXABAN
  14. VERAPAMIL [Concomitant]
     Active Substance: VERAPAMIL HYDROCHLORIDE
  15. LISINOPRIL [Concomitant]
     Active Substance: LISINOPRIL
  16. Lmx [Concomitant]
  17. LIPITOR [Concomitant]
     Active Substance: ATORVASTATIN CALCIUM
  18. VITAMIN B [Concomitant]
     Active Substance: VITAMIN B
  19. TRADJENTA [Concomitant]
     Active Substance: LINAGLIPTIN
  20. VITAMIN C [Concomitant]
     Active Substance: ASCORBIC ACID
  21. EPIPEN [Concomitant]
     Active Substance: EPINEPHRINE
  22. GABAPENTIN [Concomitant]
     Active Substance: GABAPENTIN
  23. METFORMIN [Concomitant]
     Active Substance: METFORMIN HYDROCHLORIDE
  24. PRALUENT [Concomitant]
     Active Substance: ALIROCUMAB
  25. VITAMIN B12 [Concomitant]
     Active Substance: CYANOCOBALAMIN
  26. DIPHENHYDRAMINE HYDROCHLORIDE [Concomitant]
     Active Substance: DIPHENHYDRAMINE HYDROCHLORIDE
  27. JARDIANCE [Concomitant]
     Active Substance: EMPAGLIFLOZIN
  28. VERAPAMIL HCL [Concomitant]
     Active Substance: VERAPAMIL HYDROCHLORIDE

REACTIONS (9)
  - Cataract [Unknown]
  - Angiogram [Unknown]
  - Foreign body in throat [Unknown]
  - Neoplasm malignant [Unknown]
  - Poor venous access [Unknown]
  - Cystitis [Unknown]
  - Needle issue [Unknown]
  - Bladder disorder [Unknown]
  - Infusion site pain [Unknown]

NARRATIVE: CASE EVENT DATE: 20220606
